FAERS Safety Report 7775047-8 (Version None)
Quarter: 2011Q3

REPORT INFORMATION
  Report Type: 
  Country: None (occurrence: None)
  Receive Date: 20110923
  Receipt Date: 20110922
  Transmission Date: 20111222
  Serious: Yes (Death)
  Sender: FDA-Public Use
  Company Number: JP-ROCHE-804188

PATIENT
  Sex: Male

DRUGS (4)
  1. LASIX [Concomitant]
     Route: 048
  2. D-ALFA [Concomitant]
     Route: 048
  3. GRAMALIL [Concomitant]
     Route: 048
  4. METHOXY POLYETHYLENE GLYCOL-EPOETIN BETA [Suspect]
     Indication: NEPHROGENIC ANAEMIA
     Route: 058
     Dates: start: 20110816, end: 20110816

REACTIONS (1)
  - DEATH [None]
